FAERS Safety Report 7755596-9 (Version None)
Quarter: 2011Q3

REPORT INFORMATION
  Report Type: 
  Country: None (occurrence: None)
  Receive Date: 20110914
  Receipt Date: 20110822
  Transmission Date: 20111222
  Serious: Yes (Other)
  Sender: FDA-Public Use
  Company Number: 54973 AE549

PATIENT
  Age: 67 Year
  Sex: Female

DRUGS (3)
  1. HYLAND'S LEG CRAMPS WITH QUININE TABLETS [Suspect]
     Indication: MUSCLE SPASMS
     Dosage: 2-3 TABS/DAY X 1 MO.
  2. HYLAND'S RESTFUL LEGS TABLETS [Suspect]
     Indication: RESTLESS LEGS SYNDROME
     Dosage: 4 TABS/DAY X 1 MO.
  3. POLAR TONIC WATER 1-2 CUPS/DAY X 1 MONTH [Concomitant]

REACTIONS (2)
  - MUSCLE SPASMS [None]
  - HAEMOGLOBIN DECREASED [None]
